FAERS Safety Report 21378251 (Version 4)
Quarter: 2022Q4

REPORT INFORMATION
  Report Type: Spontaneous
  Country: US (occurrence: US)
  Receive Date: 20220927
  Receipt Date: 20221020
  Transmission Date: 20230113
  Serious: Yes (Hospitalization, Other)
  Sender: FDA-Public Use
  Company Number: US-NOVARTISPH-NVSC2022US217452

PATIENT
  Age: 10 Year
  Sex: Male
  Weight: 44.8 kg

DRUGS (1)
  1. KYMRIAH [Suspect]
     Active Substance: TISAGENLECLEUCEL
     Indication: Acute lymphocytic leukaemia
     Dosage: 1 ML, ONCE/SINGLE (2.8X10^6 CAR-POSITIVE VIABLE T CELLS)
     Route: 042
     Dates: start: 20201215, end: 20201215

REACTIONS (14)
  - Seizure [Unknown]
  - Cerebrovascular accident [Unknown]
  - Dysarthria [Unknown]
  - Gaze palsy [Unknown]
  - Musculoskeletal stiffness [Unknown]
  - Facial paralysis [Unknown]
  - Nystagmus [Unknown]
  - Apnoeic attack [Unknown]
  - Metastases to central nervous system [Unknown]
  - Brain oedema [Unknown]
  - Metastases to meninges [Unknown]
  - Acute lymphocytic leukaemia recurrent [Recovered/Resolved]
  - Remission not achieved [Not Recovered/Not Resolved]
  - Nervous system disorder [Recovered/Resolved]

NARRATIVE: CASE EVENT DATE: 20220711
